FAERS Safety Report 4368480-8 (Version None)
Quarter: 2004Q2

REPORT INFORMATION
  Report Type: 
  Country: None (occurrence: None)
  Receive Date: 20040602
  Receipt Date: 20040518
  Transmission Date: 20050107
  Serious: Yes (Death)
  Sender: FDA-Public Use
  Company Number: 2004211422US

PATIENT
  Age: 54 Year
  Sex: Female

DRUGS (2)
  1. XANAX [Suspect]
  2. METHADONE HCL [Suspect]

REACTIONS (3)
  - CARDIOMEGALY [None]
  - DRUG TOXICITY [None]
  - PULMONARY OEDEMA [None]
